FAERS Safety Report 10231316 (Version 1)
Quarter: 2014Q2

REPORT INFORMATION
  Report Type: Spontaneous
  Country: GB (occurrence: GB)
  Receive Date: 20140611
  Receipt Date: 20140611
  Transmission Date: 20141212
  Serious: Yes (Other)
  Sender: FDA-Public Use
  Company Number: GB-ACTAVIS-2014-12791

PATIENT
  Age: 34 Year
  Sex: Female

DRUGS (3)
  1. TRIAMCINOLONE ACETONIDE (AMALLC) [Suspect]
     Indication: SUNCT SYNDROME
     Dosage: 40 MG ON EACH SIDE
     Route: 065
     Dates: start: 201105
  2. TRIAMCINOLONE ACETONIDE (AMALLC) [Suspect]
     Dosage: 80 MG, UNK
     Route: 065
     Dates: start: 2010
  3. LIDOCAINE [Concomitant]
     Indication: SUNCT SYNDROME
     Dosage: 1%
     Route: 065
     Dates: start: 2010

REACTIONS (3)
  - Injection site atrophy [Not Recovered/Not Resolved]
  - Application site alopecia [Not Recovered/Not Resolved]
  - Injection site discolouration [Not Recovered/Not Resolved]
